FAERS Safety Report 5463686-9 (Version None)
Quarter: 2007Q3

REPORT INFORMATION
  Report Type: 
  Country: None (occurrence: None)
  Receive Date: 20070919
  Receipt Date: 20070906
  Transmission Date: 20080115
  Serious: Yes (Other)
  Sender: FDA-Public Use
  Company Number: 236834K07USA

PATIENT
  Age: 43 Year
  Sex: Female
  Weight: 52.6173 kg

DRUGS (1)
  1. REBIF [Suspect]
     Indication: MULTIPLE SCLEROSIS
     Dosage: 44 MCG, 3 IN 1 WEEKS, SUBCUTANEOUS
     Route: 058
     Dates: start: 20050914, end: 20051001

REACTIONS (2)
  - BREAST CANCER FEMALE [None]
  - NO THERAPEUTIC RESPONSE [None]
